FAERS Safety Report 5781719-7 (Version None)
Quarter: 2008Q2

REPORT INFORMATION
  Report Type: 
  Country: None (occurrence: None)
  Receive Date: 20080623
  Receipt Date: 20080616
  Transmission Date: 20081010
  Serious: Yes (Death)
  Sender: FDA-Public Use
  Company Number: HU-ABBOTT-08P-076-0451937-00

PATIENT
  Sex: Male

DRUGS (1)
  1. LUCRIN PDS DEPOT INJECTION [Suspect]
     Indication: PROSTATE CANCER
     Route: 058

REACTIONS (1)
  - CARDIAC FAILURE [None]
